FAERS Safety Report 6716654-0 (Version None)
Quarter: 2010Q2

REPORT INFORMATION
  Report Type: 
  Country: None (occurrence: None)
  Receive Date: 20100509
  Receipt Date: 20100504
  Transmission Date: 20101027
  Serious: Yes (Hospitalization)
  Sender: FDA-Public Use
  Company Number: US-BRISTOL-MYERS SQUIBB COMPANY-15092422

PATIENT
  Age: 69 Year
  Sex: Female
  Weight: 63 kg

DRUGS (9)
  1. CYCLOPHOSPHAMIDE [Suspect]
     Indication: BREAST CANCER
     Route: 042
     Dates: start: 20100408, end: 20100408
  2. ADRIAMYCIN PFS [Suspect]
     Indication: BREAST CANCER
     Route: 042
     Dates: start: 20100408, end: 20100408
  3. AMBIEN [Concomitant]
     Indication: INSOMNIA
     Dates: start: 20100210
  4. ASPIRIN [Concomitant]
     Dates: start: 20060310
  5. ATACAND HCT [Concomitant]
     Indication: HYPERTENSION
     Dosage: 1DF:32MG/12.5MG
     Dates: start: 20060310
  6. CALCIUM [Concomitant]
     Dates: start: 20030310
  7. CARVEDILOL [Concomitant]
     Indication: HYPERTENSION
     Dates: start: 20050310
  8. CRESTOR [Concomitant]
     Indication: HYPERLIPIDAEMIA
     Dates: start: 20050310
  9. JANUMET [Concomitant]
     Indication: DIABETES MELLITUS
     Dates: start: 20060310

REACTIONS (1)
  - RENAL FAILURE ACUTE [None]
